FAERS Safety Report 13018192 (Version 2)
Quarter: 2017Q1

REPORT INFORMATION
  Report Type: Spontaneous
  Country: DE (occurrence: DE)
  Receive Date: 20161212
  Receipt Date: 20170328
  Transmission Date: 20170428
  Serious: Yes (Death, Hospitalization, Other)
  Sender: FDA-Public Use
  Company Number: DE-B.I. PHARMACEUTICALS,INC./RIDGEFIELD-2016-BI-084488

PATIENT
  Age: 86 Year
  Sex: Male
  Weight: 87 kg

DRUGS (6)
  1. RAMCLAIR [Concomitant]
     Indication: HYPERTENSION
     Dosage: FORM STRENGTH: 2 MG/25 MG
     Route: 048
  2. EUCREAS [Concomitant]
     Active Substance: METFORMIN HYDROCHLORIDE\VILDAGLIPTIN
     Indication: TYPE 2 DIABETES MELLITUS
     Dosage: FORM STRENGTH: 50 MG/850 MG
     Route: 048
  3. AMIODARON [Concomitant]
     Active Substance: AMIODARONE
     Indication: TACHYARRHYTHMIA
     Route: 048
  4. PRADAXA [Suspect]
     Active Substance: DABIGATRAN ETEXILATE MESYLATE
     Indication: ATRIAL FIBRILLATION
     Route: 048
  5. RAMIPRIL. [Concomitant]
     Active Substance: RAMIPRIL
     Indication: HYPERTENSION
     Route: 048
  6. SIMVASTATIN. [Concomitant]
     Active Substance: SIMVASTATIN
     Indication: HYPERCHOLESTEROLAEMIA
     Route: 048

REACTIONS (4)
  - Aortic thrombosis [Unknown]
  - Intestinal ischaemia [Fatal]
  - Haemorrhagic infarction [Fatal]
  - Circulatory collapse [Unknown]

NARRATIVE: CASE EVENT DATE: 20161122
